FAERS Safety Report 6907676-5 (Version None)
Quarter: 2010Q3

REPORT INFORMATION
  Report Type: 
  Country: None (occurrence: None)
  Receive Date: 20100805
  Receipt Date: 20100727
  Transmission Date: 20110219
  Serious: Yes (Other)
  Sender: FDA-Public Use
  Company Number: US-NOVOPROD-312140

PATIENT
  Sex: Male
  Weight: 100.68 kg

DRUGS (5)
  1. NOVOLOG [Suspect]
     Indication: TYPE 1 DIABETES MELLITUS
     Dosage: 8 UNITS AM, 8 UNITS LUNCH, 17 UNITS PM
     Route: 058
     Dates: start: 20070201, end: 20100727
  2. LANTUS [Concomitant]
     Indication: TYPE 1 DIABETES MELLITUS
     Dosage: UNK
     Route: 058
  3. ALPRAZOLAM [Concomitant]
     Indication: ANXIETY
     Dosage: UNK
     Route: 048
  4. CITALOPRAM                         /00582602/ [Concomitant]
     Indication: ANXIETY
     Dosage: UNK
     Route: 048
  5. HUMALOG [Concomitant]
     Indication: TYPE 1 DIABETES MELLITUS
     Dosage: UNK
     Route: 058
     Dates: start: 20100727

REACTIONS (3)
  - ANXIETY [None]
  - BLOOD GLUCOSE FLUCTUATION [None]
  - PANIC ATTACK [None]
